FAERS Safety Report 16755432 (Version 1)
Quarter: 2019Q3

REPORT INFORMATION
  Report Type: Spontaneous
  Country: CA (occurrence: CA)
  Receive Date: 20190829
  Receipt Date: 20190829
  Transmission Date: 20191005
  Serious: Yes (Other)
  Sender: FDA-Public Use
  Company Number: CA-MERZ NORTH AMERICA, INC.-19MRZ-00336

PATIENT
  Age: 42 Year
  Sex: Female
  Weight: 60 kg

DRUGS (1)
  1. XEOMIN [Suspect]
     Active Substance: INCOBOTULINUMTOXINA
     Indication: SKIN WRINKLING
     Dosage: 5 UNITS, 37 UNITS

REACTIONS (5)
  - Off label use [Not Recovered/Not Resolved]
  - Mechanical urticaria [Not Recovered/Not Resolved]
  - Rash generalised [Not Recovered/Not Resolved]
  - Headache [Not Recovered/Not Resolved]
  - Fatigue [Not Recovered/Not Resolved]
